FAERS Safety Report 11661219 (Version 1)
Quarter: 2015Q4

REPORT INFORMATION
  Report Type: Spontaneous
  Country: US (occurrence: US)
  Receive Date: 20151026
  Receipt Date: 20151026
  Transmission Date: 20160304
  Serious: Yes (Other)
  Sender: FDA-Public Use
  Company Number: US-TEVA-602814USA

PATIENT
  Age: 38 Year
  Sex: Female

DRUGS (6)
  1. COPAXONE [Suspect]
     Active Substance: GLATIRAMER ACETATE
     Indication: MULTIPLE SCLEROSIS
     Dosage: 17.1429 MILLIGRAM DAILY;
     Route: 058
     Dates: start: 201501
  2. OVIDREL [Concomitant]
     Active Substance: CHORIOGONADOTROPIN ALFA
  3. FOLLISTIM [Concomitant]
     Active Substance: FOLLITROPIN
  4. PROVERA [Concomitant]
     Active Substance: MEDROXYPROGESTERONE ACETATE
  5. PROMETRIUM [Concomitant]
     Active Substance: PROGESTERONE
  6. CLOMIPHENE [Concomitant]
     Active Substance: CLOMIPHENE

REACTIONS (1)
  - Multiple sclerosis relapse [Recovered/Resolved]

NARRATIVE: CASE EVENT DATE: 20150925
